FAERS Safety Report 5142793-4 (Version None)
Quarter: 2006Q4

REPORT INFORMATION
  Report Type: 
  Country: None (occurrence: None)
  Receive Date: 20061027
  Receipt Date: 20061013
  Transmission Date: 20070319
  Serious: Yes (Other)
  Sender: FDA-Public Use
  Company Number: US200610002495

PATIENT
  Age: 64 Year
  Sex: Male

DRUGS (3)
  1. GEMZAR [Suspect]
     Indication: NON-HODGKIN'S LYMPHOMA
     Dates: start: 20060801
  2. CISPLATIN [Concomitant]
  3. DEXAMETHASONE TAB [Concomitant]

REACTIONS (1)
  - THROMBOCYTOPENIA [None]
